FAERS Safety Report 6869161-9 (Version None)
Quarter: 2010Q3

REPORT INFORMATION
  Report Type: 
  Country: None (occurrence: None)
  Receive Date: 20100722
  Receipt Date: 20080829
  Transmission Date: 20110219
  Serious: Yes (Hospitalization, Other)
  Sender: FDA-Public Use
  Company Number: US-PFIZER INC-2008058585

PATIENT
  Sex: Female
  Weight: 75.8 kg

DRUGS (12)
  1. CHANTIX [Suspect]
     Indication: SMOKING CESSATION THERAPY
     Dates: start: 20080307, end: 20080101
  2. LIPITOR [Concomitant]
  3. TOPROL-XL [Concomitant]
  4. PRILOSEC [Concomitant]
  5. AVELOX [Concomitant]
  6. TEMAZEPAM [Concomitant]
  7. CYMBALTA [Concomitant]
  8. LEXAPRO [Concomitant]
  9. MULTI-VITAMINS [Concomitant]
  10. VITAMIN C [Concomitant]
  11. HERBAL PREPARATION [Concomitant]
  12. AROMASIN [Concomitant]

REACTIONS (1)
  - CHEST PAIN [None]
